FAERS Safety Report 9813264 (Version 1)
Quarter: 2014Q1

REPORT INFORMATION
  Report Type: Spontaneous
  Country: US (occurrence: US)
  Receive Date: 20140113
  Receipt Date: 20140113
  Transmission Date: 20141002
  Serious: Yes (Death)
  Sender: FDA-Public Use
  Company Number: US-BAYER-2014-003289

PATIENT
  Age: 33 Year
  Sex: Male

DRUGS (5)
  1. DEXTROMETHORPHAN (ROMILAR, XINLI) +/- GUAIFENESIN [Suspect]
  2. HEROIN [Suspect]
  3. ALPRAZOLAM [Suspect]
  4. COCAINE [Suspect]
  5. QUININE [Suspect]

REACTIONS (1)
  - Toxicity to various agents [Fatal]
